FAERS Safety Report 14190851 (Version 1)
Quarter: 2017Q4

REPORT INFORMATION
  Report Type: Report from Study
  Country: CA (occurrence: CA)
  Receive Date: 20171115
  Receipt Date: 20171115
  Transmission Date: 20180321
  Serious: Yes (Life-Threatening)
  Sender: FDA-Public Use
  Company Number: CA-TOLMAR, INC.-2017CA015570

PATIENT

DRUGS (1)
  1. ELIGARD [Suspect]
     Active Substance: LEUPROLIDE ACETATE
     Indication: PROSTATE CANCER
     Dosage: 45 MG, EVERY 24 WEEK
     Route: 058
     Dates: start: 20160130, end: 20171110

REACTIONS (3)
  - Asthenia [Unknown]
  - Suicidal ideation [Unknown]
  - Metastasis [Unknown]

NARRATIVE: CASE EVENT DATE: 20171109
